FAERS Safety Report 8444348-2 (Version None)
Quarter: 2012Q2

REPORT INFORMATION
  Report Type: 
  Country: None (occurrence: None)
  Receive Date: 20120618
  Receipt Date: 20120605
  Transmission Date: 20120825
  Serious: No
  Sender: FDA-Public Use
  Company Number: US-B.I. PHARMACEUTICALS,INC./RIDGEFIELD-2012-BP-13056BP

PATIENT
  Age: 90 Year
  Sex: Male

DRUGS (3)
  1. FLOMAX [Concomitant]
     Indication: BENIGN PROSTATIC HYPERPLASIA
  2. ASPIRIN [Concomitant]
     Indication: PROPHYLAXIS
  3. SPIRIVA [Suspect]
     Indication: EMPHYSEMA
     Dosage: 18 MCG
     Route: 055
     Dates: start: 20120504

REACTIONS (3)
  - DIZZINESS [None]
  - HEAD INJURY [None]
  - PAIN [None]
